FAERS Safety Report 21418760 (Version 1)
Quarter: 2022Q4

REPORT INFORMATION
  Report Type: Spontaneous
  Country: US (occurrence: US)
  Receive Date: 20221006
  Receipt Date: 20221006
  Transmission Date: 20230113
  Serious: No
  Sender: FDA-Public Use
  Company Number: US-KARYOPHARM-2022KPT000857

PATIENT

DRUGS (17)
  1. XPOVIO [Suspect]
     Active Substance: SELINEXOR
     Indication: Plasma cell myeloma
     Dosage: 60 MG, WEEKLY (THREE WEEKS ON AND ONE WEEK OFF)
     Route: 048
     Dates: start: 20220722, end: 20220811
  2. ACYCLOVIR [Concomitant]
     Active Substance: ACYCLOVIR
  3. ALBUTEROL SULFATE [Concomitant]
     Active Substance: ALBUTEROL SULFATE
  4. AMLODIPINE [Concomitant]
     Active Substance: AMLODIPINE BESYLATE
  5. ASPIRIN [Concomitant]
     Active Substance: ASPIRIN
  6. CHOLESTYRAMINE [Concomitant]
     Active Substance: CHOLESTYRAMINE
  7. DECADRON [Concomitant]
     Active Substance: DEXAMETHASONE
  8. GABAPENTIN [Concomitant]
     Active Substance: GABAPENTIN
  9. HYDROCHLOROTHIAZIDE [Concomitant]
     Active Substance: HYDROCHLOROTHIAZIDE
  10. IRBESARTAN [Concomitant]
     Active Substance: IRBESARTAN
  11. KYPROLIS [Concomitant]
     Active Substance: CARFILZOMIB
  12. MEGESTROL [Concomitant]
     Active Substance: MEGESTROL
  13. SINGULAIR [Concomitant]
     Active Substance: MONTELUKAST SODIUM
  14. NEXIUM I.V. [Concomitant]
     Active Substance: ESOMEPRAZOLE SODIUM
  15. ONDANSETRON [Concomitant]
     Active Substance: ONDANSETRON
  16. QUESTRAN [Concomitant]
     Active Substance: CHOLESTYRAMINE
  17. PRAVASTATIN [Concomitant]
     Active Substance: PRAVASTATIN

REACTIONS (8)
  - Pain [Unknown]
  - Taste disorder [Unknown]
  - Hypoaesthesia oral [Not Recovered/Not Resolved]
  - Dry mouth [Unknown]
  - Plasma cell myeloma [Unknown]
  - Fatigue [Unknown]
  - Decreased appetite [Unknown]
  - Asthenia [Unknown]

NARRATIVE: CASE EVENT DATE: 20220101
